FAERS Safety Report 6651541-8 (Version None)
Quarter: 2010Q1

REPORT INFORMATION
  Report Type: 
  Country: None (occurrence: None)
  Receive Date: 20100325
  Receipt Date: 20100319
  Transmission Date: 20100710
  Serious: Yes (Other)
  Sender: FDA-Public Use
  Company Number: A0851170A

PATIENT
  Age: 13 Year
  Sex: Female

DRUGS (3)
  1. FLOVENT [Suspect]
     Indication: ASTHMA
     Dosage: 2PUFF TWICE PER DAY
     Route: 055
     Dates: start: 20090101
  2. SINGULAIR [Concomitant]
  3. ALBUTEROL [Concomitant]

REACTIONS (13)
  - ABDOMINAL PAIN UPPER [None]
  - ASTHMA [None]
  - BLOOD CORTISOL DECREASED [None]
  - DRUG HYPERSENSITIVITY [None]
  - FATIGUE [None]
  - GROWTH RETARDATION [None]
  - HEADACHE [None]
  - ILL-DEFINED DISORDER [None]
  - INSOMNIA [None]
  - NONSPECIFIC REACTION [None]
  - OBESITY [None]
  - STRESS [None]
  - WEIGHT INCREASED [None]
